FAERS Safety Report 20778596 (Version 1)
Quarter: 2022Q2

REPORT INFORMATION
  Report Type: Spontaneous
  Country: CH (occurrence: CH)
  Receive Date: 20220503
  Receipt Date: 20220503
  Transmission Date: 20220720
  Serious: Yes (Hospitalization)
  Sender: FDA-Public Use
  Company Number: None

PATIENT
  Age: 86 Year
  Sex: Male

DRUGS (21)
  1. CYCLOSPORINE [Suspect]
     Active Substance: CYCLOSPORINE
     Indication: Stevens-Johnson syndrome
     Dosage: SANDIMMUN NEORAL (CICLOSPORIN) ORAL INTAKE 225 MG/DAY FROM 23. - 31.12.21, REDUCTION OF THE DOSE...
     Route: 048
     Dates: start: 20211223, end: 20211231
  2. CYCLOSPORINE [Suspect]
     Active Substance: CYCLOSPORINE
     Dosage: SANDIMMUN NEORAL (CICLOSPORIN) ORAL INTAKE 225 MG/DAY FROM 23. - 31.12.21, REDUCTION OF THE DOSE...
     Route: 048
     Dates: start: 20220101, end: 20220102
  3. CYCLOSPORINE [Suspect]
     Active Substance: CYCLOSPORINE
     Dosage: SANDIMMUN NEORAL (CICLOSPORIN) ORAL INTAKE 225 MG/DAY FROM 23. - 31.12.21, REDUCTION OF THE DOSE...
     Route: 048
     Dates: start: 20220103
  4. RITUXIMAB [Suspect]
     Active Substance: RITUXIMAB
     Indication: B-cell lymphoma
     Dosage: RITUXIMAB / BENDAMUSTIN (NO EXACT INFORMATION, SINCE IN EXTERNAL HOSPITAL) 1ST CYCLE 16.11.2021, 2ND
     Route: 065
     Dates: start: 20211116, end: 20211116
  5. RITUXIMAB [Suspect]
     Active Substance: RITUXIMAB
     Dosage: RITUXIMAB / BENDAMUSTIN (NO EXACT INFORMATION, SINCE IN EXTERNAL HOSPITAL) 1ST CYCLE 16.11.2021, 2ND
     Route: 065
     Dates: start: 20211210, end: 20211210
  6. BENDAMUSTINE [Suspect]
     Active Substance: BENDAMUSTINE
     Indication: B-cell lymphoma
     Dosage: RITUXIMAB / BENDAMUSTIN (NO EXACT INFORMATION, SINCE IN EXTERNAL HOSPITAL) 1ST CYCLE 16.11.2021, 2ND
     Route: 065
     Dates: start: 20211116, end: 20211116
  7. BENDAMUSTINE [Suspect]
     Active Substance: BENDAMUSTINE
     Dosage: RITUXIMAB / BENDAMUSTIN (NO EXACT INFORMATION, SINCE IN EXTERNAL HOSPITAL) 1ST CYCLE 16.11.2021, 2ND
     Route: 065
     Dates: start: 20211210, end: 20211210
  8. AMLODIPINE BESYLATE [Suspect]
     Active Substance: AMLODIPINE BESYLATE
     Indication: Product used for unknown indication
     Dosage: AMLODIPINE 5 MG / DAY (LAST 24.12.2021)
     Route: 048
     Dates: end: 20211224
  9. CANDESARTAN [Suspect]
     Active Substance: CANDESARTAN
     Indication: Product used for unknown indication
     Dosage: CANDESARTAN 16 MG / DAY (PRESUMABLY LAST A, 22.12.2021)
     Route: 048
     Dates: end: 20211222
  10. ROSUVASTATIN [Suspect]
     Active Substance: ROSUVASTATIN
     Indication: Product used for unknown indication
     Dosage: ROSUVASTATIN 10 MG / DAY (LAST MODIFIED 26.12.2021)
     Route: 048
     Dates: end: 20211226
  11. OLMESARTAN [Suspect]
     Active Substance: OLMESARTAN
     Indication: Product used for unknown indication
     Dosage: OLMESARTAN 20 MG / DAY (PRESUMABLY LAST A, 22.12.2021)
     Route: 048
     Dates: end: 20211222
  12. BACTRIM [Concomitant]
     Active Substance: SULFAMETHOXAZOLE\TRIMETHOPRIM
     Indication: Product used for unknown indication
     Dosage: BACTRIM FORTE (TRIMETHOPRIM/SULFAMETHOXAZOL) 800/160MG, SEIT 12/2021 0.5-0-0-0
     Route: 048
     Dates: start: 202112
  13. PANTOPRAZOLE SODIUM [Concomitant]
     Active Substance: PANTOPRAZOLE SODIUM
     Dosage: PANTOPRAZOL 20MG 1-0-0-0
     Route: 048
  14. PREDNISOLONE [Concomitant]
     Active Substance: PREDNISOLONE
     Dosage: SPIRICORT (PREDNISOLON) 50MG 1.5-0-0-0
     Route: 048
  15. THIAMINE HYDROCHLORIDE [Concomitant]
     Active Substance: THIAMINE HYDROCHLORIDE
     Dosage: BENERVA (THIAMIN) 300MG 1-0-0-0
     Route: 048
  16. ELIQUIS [Concomitant]
     Active Substance: APIXABAN
     Dosage: ELIQUIS (APIXABAN) 5MG 1-0-1-0
     Route: 048
  17. ACETAMINOPHEN [Concomitant]
     Active Substance: ACETAMINOPHEN
     Dosage: PARACETAMOL 1G, I.R. ; AS NECESSARY
     Route: 048
  18. ZOLPIDEM [Concomitant]
     Active Substance: ZOLPIDEM TARTRATE
     Dosage: ZOLPIDEM 10MG, I.R. ; AS NECESSARY
     Route: 048
  19. HERBALS [Concomitant]
     Active Substance: HERBALS
     Dosage: VALVERDE BALDRIAN I.R.  AS NECESSARY
     Route: 048
  20. HERBALS [Concomitant]
     Active Substance: HERBALS
     Dosage: VALVERDE FEIGENSIRUP I.R. ; AS NECESSARY
     Route: 048
  21. LEVOCETIRIZINE DIHYDROCHLORIDE [Concomitant]
     Active Substance: LEVOCETIRIZINE DIHYDROCHLORIDE
     Dosage: LEVOCETIRIZIN 5MG I.R. ; AS NECESSARY
     Route: 048

REACTIONS (4)
  - Thrombocytopenia [Recovered/Resolved]
  - Normochromic normocytic anaemia [Recovering/Resolving]
  - Alanine aminotransferase increased [Recovered/Resolved]
  - Gamma-glutamyltransferase increased [Recovered/Resolved]

NARRATIVE: CASE EVENT DATE: 20211227
